FAERS Safety Report 6924101-9 (Version None)
Quarter: 2010Q3

REPORT INFORMATION
  Report Type: 
  Country: None (occurrence: None)
  Receive Date: 20100813
  Receipt Date: 20100726
  Transmission Date: 20110219
  Serious: Yes (Other)
  Sender: FDA-Public Use
  Company Number: US-ROCHE-720500

PATIENT
  Sex: Female

DRUGS (8)
  1. XELODA [Suspect]
     Indication: PRODUCT USED FOR UNKNOWN INDICATION
     Route: 065
  2. TYKERB [Suspect]
     Indication: BREAST CANCER
     Dosage: DOSE:250 DAILY (UNIT NOT REPORTED)
     Route: 048
     Dates: start: 20100705
  3. VICODIN [Concomitant]
  4. XANAX [Concomitant]
  5. ATIVAN [Concomitant]
  6. FLEXERIL [Concomitant]
  7. BENADRYL [Concomitant]
  8. MARINOL [Concomitant]

REACTIONS (7)
  - DIARRHOEA [None]
  - DYSPNOEA [None]
  - IMPAIRED HEALING [None]
  - NAUSEA [None]
  - PALMAR-PLANTAR ERYTHRODYSAESTHESIA SYNDROME [None]
  - TACHYCARDIA [None]
  - VOMITING [None]
